FAERS Safety Report 10050022 (Version 1)
Quarter: 2014Q1

REPORT INFORMATION
  Report Type: Spontaneous
  Country: US (occurrence: None)
  Receive Date: 20140331
  Receipt Date: 20140331
  Transmission Date: 20141002
  Serious: Yes (Other)
  Sender: FDA-Public Use
  Company Number: None

PATIENT
  Sex: 0

DRUGS (1)
  1. EFFEXOR XR [Suspect]

REACTIONS (4)
  - Blood pressure increased [None]
  - Anxiety [None]
  - Mood altered [None]
  - Therapy cessation [None]
